FAERS Safety Report 7636209-3 (Version None)
Quarter: 2011Q3

REPORT INFORMATION
  Report Type: 
  Country: None (occurrence: None)
  Receive Date: 20110726
  Receipt Date: 20110714
  Transmission Date: 20111222
  Serious: Yes (Other)
  Sender: FDA-Public Use
  Company Number: DK-JNJFOC-20110709518

PATIENT
  Sex: Female
  Weight: 74 kg

DRUGS (2)
  1. REMICADE [Suspect]
     Indication: COLITIS ULCERATIVE
     Route: 042
     Dates: start: 20100806, end: 20101221
  2. ASACOL [Concomitant]
     Indication: COLITIS ULCERATIVE
     Dates: start: 20030101

REACTIONS (3)
  - HEPATIC ENZYME INCREASED [None]
  - ARTHRALGIA [None]
  - SYNOVITIS [None]
